FAERS Safety Report 7275182-7 (Version None)
Quarter: 2011Q1

REPORT INFORMATION
  Report Type: 
  Country: None (occurrence: None)
  Receive Date: 20110204
  Receipt Date: 20110124
  Transmission Date: 20110831
  Serious: Yes (Hospitalization)
  Sender: FDA-Public Use
  Company Number: PHHY2011PT05723

PATIENT
  Sex: Female

DRUGS (1)
  1. ACLASTA [Suspect]
     Indication: OSTEOPOROSIS
     Dosage: 5 MG,
     Route: 042
     Dates: start: 20101220

REACTIONS (5)
  - OSTEOMYELITIS [None]
  - INFLAMMATION [None]
  - INFLUENZA LIKE ILLNESS [None]
  - OSTEONECROSIS OF JAW [None]
  - PYREXIA [None]
